FAERS Safety Report 5772824-X (Version None)
Quarter: 2008Q2

REPORT INFORMATION
  Report Type: 
  Country: None (occurrence: None)
  Receive Date: 20080601
  Receipt Date: 20080318
  Transmission Date: 20081010
  Serious: No
  Sender: FDA-Public Use
  Company Number: US200803004392

PATIENT
  Sex: Male

DRUGS (2)
  1. BYETTA [Suspect]
     Dosage: 15 UG, SUBCUTANEOUS
     Route: 058
  2. DRUG USED IN DIABETES [Concomitant]

REACTIONS (1)
  - DRUG PRESCRIBING ERROR [None]
